FAERS Safety Report 7898210-4 (Version None)
Quarter: 2011Q4

REPORT INFORMATION
  Report Type: 
  Country: None (occurrence: None)
  Receive Date: 20111103
  Receipt Date: 20111024
  Transmission Date: 20120403
  Serious: Yes (Hospitalization)
  Sender: FDA-Public Use
  Company Number: AUR-APL-2011-01510

PATIENT
  Age: 46 Year
  Sex: Female

DRUGS (9)
  1. LISINOPRIL [Suspect]
     Indication: PRODUCT USED FOR UNKNOWN INDICATION
  2. INSULIN GLARGINE (INSULIN GLARGINE) [Suspect]
     Indication: PRODUCT USED FOR UNKNOWN INDICATION
     Dosage: (20 IU)
  3. SPIRONOLACTONE [Suspect]
     Indication: PRODUCT USED FOR UNKNOWN INDICATION
  4. INSULIN ASPART (INSULIN ASPART) [Suspect]
     Indication: PRODUCT USED FOR UNKNOWN INDICATION
     Dosage: (27 IU)
  5. ASPIRIN [Concomitant]
  6. METFORMIN HCL [Suspect]
     Indication: PRODUCT USED FOR UNKNOWN INDICATION
     Dosage: (500 MG),
     Dates: start: 20110110, end: 20110110
  7. HYDROCHLOROTHIAZIDE [Suspect]
     Indication: PRODUCT USED FOR UNKNOWN INDICATION
  8. CELEBREX [Suspect]
     Indication: ARTHRITIS
  9. BLINDED THERAPY [Suspect]
     Indication: TYPE 2 DIABETES MELLITUS
     Dosage: 5 MG
     Dates: start: 20100826

REACTIONS (3)
  - CAMPYLOBACTER GASTROENTERITIS [None]
  - DEHYDRATION [None]
  - RENAL FAILURE ACUTE [None]
